FAERS Safety Report 4491900-5 (Version None)
Quarter: 2004Q4

REPORT INFORMATION
  Report Type: 
  Country: None (occurrence: None)
  Receive Date: 20041029
  Receipt Date: 20041029
  Transmission Date: 20050328
  Serious: Yes (Hospitalization)
  Sender: FDA-Public Use
  Company Number: None

PATIENT
  Age: 77 Year
  Sex: Female

DRUGS (5)
  1. FUROSEMIDE [Suspect]
     Indication: HYPERTENSION
  2. LANOXIN [Concomitant]
  3. PROZAC [Concomitant]
  4. LASIX [Concomitant]
  5. UNSPECIFIED ALZHEIMER'S MEDICATION [Concomitant]

REACTIONS (2)
  - DEHYDRATION [None]
  - FALL [None]
